FAERS Safety Report 19387259 (Version 1)
Quarter: 2021Q2

REPORT INFORMATION
  Report Type: Spontaneous
  Country: US (occurrence: US)
  Receive Date: 20210605
  Receipt Date: 20210605
  Transmission Date: 20210717
  Serious: Yes (Disabling, Other)
  Sender: FDA-Public Use
  Company Number: None

PATIENT
  Age: 67 Year
  Sex: Female
  Weight: 58.97 kg

DRUGS (13)
  1. MONTELUKAST [Concomitant]
     Active Substance: MONTELUKAST SODIUM
  2. SYMBICORT [Concomitant]
     Active Substance: BUDESONIDE\FORMOTEROL FUMARATE DIHYDRATE
  3. ALBUTEROL SULFATE INHALER [Concomitant]
     Active Substance: ALBUTEROL SULFATE
  4. AZITHROMYCIN ANHYDROUS. [Concomitant]
     Active Substance: AZITHROMYCIN ANHYDROUS
  5. TURMERIC [Concomitant]
     Active Substance: HERBALS\TURMERIC
  6. FLUTICASONE. [Concomitant]
     Active Substance: FLUTICASONE
  7. NUCALA [Suspect]
     Active Substance: MEPOLIZUMAB
     Indication: ASTHMA
     Dosage: ?          QUANTITY:100 MG MILLIGRAM(S);?
     Route: 058
     Dates: start: 20200622, end: 20210308
  8. GUAIFENESIN. [Concomitant]
     Active Substance: GUAIFENESIN
  9. IPRATROPIUM BROMIDE/ALBUTER SULFATE SOLUTION [Concomitant]
  10. IBUPROFEN. [Concomitant]
     Active Substance: IBUPROFEN
  11. CALCIUM CITRATE SUPPLEMENT WITH C, D, AND MAGNESIUM [Concomitant]
  12. PREDNISONE. [Concomitant]
     Active Substance: PREDNISONE
  13. MULTI?VITAMIN [Concomitant]
     Active Substance: .ALPHA.-TOCOPHEROL ACETATE, DL-\ASCORBIC ACID\CYANOCOBALAMIN\FLUORIDE ION\FOLIC ACID\NIACIN\PYRIDOXINE\RIBOFLAVIN\THIAMINE\VITAMIN A\VITAMIN D

REACTIONS (26)
  - Insomnia [None]
  - Myalgia [None]
  - Arthralgia [None]
  - Neck pain [None]
  - Muscle spasms [None]
  - Dizziness [None]
  - Dyspnoea [None]
  - Diarrhoea [None]
  - Gait inability [None]
  - Motor dysfunction [None]
  - Haematochezia [None]
  - Musculoskeletal stiffness [None]
  - Headache [None]
  - Peripheral swelling [None]
  - Tremor [None]
  - Arthropathy [None]
  - Influenza like illness [None]
  - Pain [None]
  - Laboratory test abnormal [None]
  - Psychomotor hyperactivity [None]
  - Fatigue [None]
  - Joint lock [None]
  - Loss of personal independence in daily activities [None]
  - Drug ineffective [None]
  - Joint range of motion decreased [None]
  - Neuralgia [None]

NARRATIVE: CASE EVENT DATE: 20210308
